FAERS Safety Report 20029636 (Version 1)
Quarter: 2021Q4

REPORT INFORMATION
  Report Type: Spontaneous
  Country: DE (occurrence: DE)
  Receive Date: 20211103
  Receipt Date: 20211103
  Transmission Date: 20220304
  Serious: Yes (Other)
  Sender: FDA-Public Use
  Company Number: DE-TEVA-2021-DE-1971220

PATIENT
  Age: 24 Year
  Sex: Female

DRUGS (1)
  1. COPAXONE [Suspect]
     Active Substance: GLATIRAMER ACETATE
     Route: 065
     Dates: start: 202108

REACTIONS (4)
  - Hepatic steatosis [Unknown]
  - Aspartate aminotransferase [Unknown]
  - Alanine aminotransferase [Unknown]
  - Gamma-glutamyltransferase [Unknown]

NARRATIVE: CASE EVENT DATE: 20210929
